FAERS Safety Report 26024318 (Version 1)
Quarter: 2025Q4

REPORT INFORMATION
  Report Type: Spontaneous
  Country: US (occurrence: US)
  Receive Date: 20251111
  Receipt Date: 20251111
  Transmission Date: 20260118
  Serious: No
  Sender: TOLMAR
  Company Number: US-Tolmar-TLM-2025-08149

PATIENT

DRUGS (2)
  1. ELIGARD [Suspect]
     Active Substance: LEUPROLIDE ACETATE
     Indication: Prostate cancer
     Dosage: BOX LOT: 15320CUS EXP: 31-08-2026 (FOR BOTH BOXES)?SN#:4561814332642?GTIN: 00362935461500?SYRINGE A:
  2. DEVICE [Suspect]
     Active Substance: DEVICE
     Indication: Prostate cancer
     Dosage: BOX LOT: 15320CUS EXP: 31-08-2026 (FOR BOTH BOXES)?SN#:4561814332642?GTIN: 00362935461500?SYRINGE A:

REACTIONS (4)
  - Intercepted product preparation error [Unknown]
  - Device leakage [Unknown]
  - Device occlusion [Unknown]
  - Product preparation error [Unknown]
